FAERS Safety Report 16504650 (Version 2)
Quarter: 2019Q3

REPORT INFORMATION
  Report Type: Spontaneous
  Country: FR (occurrence: FR)
  Receive Date: 20190701
  Receipt Date: 20190712
  Transmission Date: 20191004
  Serious: Yes (Hospitalization)
  Sender: FDA-Public Use
  Company Number: FR-BAUSCH-BL-2019-018506

PATIENT
  Age: 62 Year
  Sex: Female

DRUGS (6)
  1. TERBUTALINE [Suspect]
     Active Substance: TERBUTALINE
     Indication: DYSPNOEA
  2. TERBUTALINE [Suspect]
     Active Substance: TERBUTALINE
     Indication: WHEEZING
     Dosage: 3 AEROSOLS
     Route: 055
  3. IPRATROPIUM [Suspect]
     Active Substance: IPRATROPIUM
     Indication: DYSPNOEA
  4. METHYLPREDNISOLONE. [Suspect]
     Active Substance: METHYLPREDNISOLONE
     Indication: WHEEZING
     Route: 042
  5. METHYLPREDNISOLONE. [Suspect]
     Active Substance: METHYLPREDNISOLONE
     Indication: DYSPNOEA
  6. IPRATROPIUM [Suspect]
     Active Substance: IPRATROPIUM
     Indication: WHEEZING
     Dosage: 3 AEROSOLS
     Route: 055

REACTIONS (3)
  - Product use in unapproved indication [Unknown]
  - Hyperlactacidaemia [Recovering/Resolving]
  - Lactic acidosis [Recovering/Resolving]
